FAERS Safety Report 9531227 (Version 1)
Quarter: 2013Q3

REPORT INFORMATION
  Report Type: Spontaneous
  Country: FR (occurrence: None)
  Receive Date: 20130916
  Receipt Date: 20130916
  Transmission Date: 20140515
  Serious: Yes (Death)
  Sender: FDA-Public Use
  Company Number: 2013-1482

PATIENT
  Age: 57 Year
  Sex: Female

DRUGS (15)
  1. CARFILZOMIB [Suspect]
     Indication: PLASMA CELL MYELOMA
     Dosage: 38 MG DAYS 1,2
     Route: 042
     Dates: start: 20121107, end: 20121108
  2. DEXAMETHASONE [Suspect]
     Indication: PLASMA CELL MYELOMA
     Dosage: 20 MG, DAYS 1,2,8,9,15,16,22,23 EVERY 28 DAYS
     Route: 048
     Dates: start: 20121107, end: 20121114
  3. DITROPAN (OXYBUTYNIN HYDRCHLORIDE) [Concomitant]
  4. LEDERFOLINE (CALCIUM FLOINATE) (CALCIUM FLOINATE) [Concomitant]
  5. PRITOR (TELMISARTAN)(TELMISARTAN) (TELMISARTAN) [Concomitant]
  6. TEMERIT (NEBIVOLOL HYDROCHLORIDE) (NEBIVOLOL HYDROCHLORIDE) [Concomitant]
  7. WELLVONE (ATORVAQUONE) (ATORVAQUONE) [Concomitant]
  8. ZANIDIP (LERCANIDIPINE HYDROCHLORIDE) (LERCANIDIPINE HYDROCHLORIDE) [Concomitant]
  9. ZELITREX (VALACICLOVIR HYDROCHLORIDE) (VALACICLOVIR HYDROCHLORIDE) [Concomitant]
  10. INEXIUM (ESOMEDPRAZOLE MAGNESIUM) (ESOMEPRAZOLE MAGNESIUM) [Concomitant]
  11. DIFFU K (POTASSIUM CHLORIDE) (POTASSIUM CHLORRIDE) [Concomitant]
  12. GAVISCON (ALGINATE DE SODIUM, BICARBONATE DE SODIUM, ALUMINUM HYDROXIDE GEL,DRIED,ALGINIC ACID, SODIUM ALGINATE, MAGNESIUM TRISCILATE)(ALGINATE DE SODIUM, BICARBONATE DE SODIUM, ALUMINUM HYDROXIDE GEL,DRIED,ALGINIC ACID, SODIUM ALGINATE, MAGNESIUM TRISCILATE) [Concomitant]
  13. VALACICLOVIR (VALACICLOVIR) (VALACICLOVIR) [Concomitant]
  14. LASILEX (FUROSEMIDE) (FUROSEMIDE) [Concomitant]
  15. CLAFORAN (CEFOTAXIME SODIUM) (CEFOTAXIME SODIUM) [Concomitant]

REACTIONS (2)
  - Pulmonary hypertension [None]
  - Pneumococcal infection [None]
